FAERS Safety Report 9596038 (Version 1)
Quarter: 2013Q4

REPORT INFORMATION
  Report Type: Spontaneous
  Country: US (occurrence: US)
  Receive Date: 20131004
  Receipt Date: 20131004
  Transmission Date: 20140711
  Serious: No
  Sender: FDA-Public Use
  Company Number: US-PURDUE-USA-2012-0093757

PATIENT
  Age: 63 Year
  Sex: Female

DRUGS (4)
  1. BUTRANS [Suspect]
     Indication: FACIAL NEURALGIA
     Dosage: 5 MCG, UNK
     Route: 062
     Dates: start: 20120906, end: 20120906
  2. VICODIN [Concomitant]
     Indication: FACIAL NEURALGIA
     Dosage: 3 (5/500 MG) TABLET, DAILY
     Route: 048
  3. LYRICA [Concomitant]
     Indication: FACIAL NEURALGIA
     Dosage: 100 MG, DAILY
     Route: 048
  4. LYRICA [Concomitant]
     Dosage: 200 MG, PM
     Route: 048

REACTIONS (1)
  - Somnolence [Recovered/Resolved]
